FAERS Safety Report 25036248 (Version 1)
Quarter: 2025Q1

REPORT INFORMATION
  Report Type: Spontaneous
  Country: US (occurrence: None)
  Receive Date: 20250304
  Receipt Date: 20250304
  Transmission Date: 20250408
  Serious: Yes (Hospitalization)
  Sender: FDA-CTU
  Company Number: None

PATIENT
  Sex: Female

DRUGS (3)
  1. FORTEO [Suspect]
     Active Substance: TERIPARATIDE
     Route: 058
     Dates: start: 20241213
  2. ESTRADOL CRE 0.01% [Concomitant]
  3. MODAFINIL TAB 100MG [Concomitant]

REACTIONS (2)
  - Influenza [None]
  - Therapy interrupted [None]
